FAERS Safety Report 24603819 (Version 1)
Quarter: 2024Q4

REPORT INFORMATION
  Report Type: Report from Study
  Country: BR (occurrence: BR)
  Receive Date: 20241111
  Receipt Date: 20241111
  Transmission Date: 20250115
  Serious: Yes (Death, Other)
  Sender: BIOVITRUM
  Company Number: BR-AstraZeneca-CH-00740588A

PATIENT
  Sex: Male
  Weight: 5 kg

DRUGS (1)
  1. PALIVIZUMAB [Suspect]
     Active Substance: PALIVIZUMAB
     Indication: Ventricular septal defect
     Dosage: 15 MILLIGRAM/KILOGRAM, QMONTH
     Route: 030

REACTIONS (2)
  - Death [Fatal]
  - Surgery [Unknown]
